FAERS Safety Report 5933122-4 (Version None)
Quarter: 2008Q4

REPORT INFORMATION
  Report Type: 
  Country: None (occurrence: None)
  Receive Date: 20081023
  Receipt Date: 20060822
  Transmission Date: 20090506
  Serious: Yes (Death, Other)
  Sender: FDA-Public Use
  Company Number: 2006AL002574

PATIENT
  Sex: Female

DRUGS (4)
  1. FLUOXETINE [Suspect]
     Dosage: PO
     Route: 048
     Dates: start: 20020422, end: 20020517
  2. ATORVASTATIN CALCIUM [Concomitant]
  3. DILTIAZEM HCL [Concomitant]
  4. DOMPERIDONE [Concomitant]

REACTIONS (5)
  - ANAEMIA [None]
  - CARDIAC ARREST [None]
  - ECCHYMOSIS [None]
  - PETECHIAE [None]
  - THROMBOCYTOPENIA [None]
